FAERS Safety Report 5147937-6 (Version None)
Quarter: 2006Q4

REPORT INFORMATION
  Report Type: 
  Country: None (occurrence: None)
  Receive Date: 20061110
  Receipt Date: 20061101
  Transmission Date: 20070319
  Serious: Yes (Death)
  Sender: FDA-Public Use
  Company Number: JP-BRISTOL-MYERS SQUIBB COMPANY-13572458

PATIENT
  Age: 40 Year
  Sex: Female

DRUGS (7)
  1. ARIPIPRAZOLE [Suspect]
     Indication: SCHIZOPHRENIA
     Route: 048
  2. QUETIAPINE [Concomitant]
     Route: 048
  3. SULPIRIDE [Concomitant]
  4. LEVOMEPROMAZINE [Concomitant]
  5. ETIZOLAM [Concomitant]
     Route: 048
  6. DIAZEPAM [Concomitant]
     Route: 048
  7. FLUNITRAZEPAM [Concomitant]

REACTIONS (1)
  - COMPLETED SUICIDE [None]
